FAERS Safety Report 4331490-0 (Version None)
Quarter: 2004Q1

REPORT INFORMATION
  Report Type: 
  Country: None (occurrence: None)
  Receive Date: 20040329
  Receipt Date: 20040317
  Transmission Date: 20041129
  Serious: Yes (Other)
  Sender: FDA-Public Use
  Company Number: US-JNJFOC-20040304391

PATIENT
  Age: 47 Year
  Sex: Female
  Weight: 45.3597 kg

DRUGS (5)
  1. ELMIRON [Suspect]
     Indication: CYSTITIS INTERSTITIAL
     Dosage: 100 MG, 2 IN 1 DAY, ORAL
     Route: 048
     Dates: start: 20000301, end: 20040301
  2. CELEXA [Concomitant]
  3. VIOXX [Concomitant]
  4. ULTRAM [Concomitant]
  5. HERBAL-PH CONTROL MEDS (ALL OTHER NON-THERAPEUTIC PRODUCTS) [Concomitant]

REACTIONS (2)
  - HYPERKINESIA [None]
  - PETIT MAL EPILEPSY [None]
